FAERS Safety Report 19700416 (Version 1)
Quarter: 2021Q3

REPORT INFORMATION
  Report Type: Spontaneous
  Country: SE (occurrence: SE)
  Receive Date: 20210813
  Receipt Date: 20210813
  Transmission Date: 20211014
  Serious: Yes (Other)
  Sender: FDA-Public Use
  Company Number: SE-ORGANON-O2108SWE000830

PATIENT
  Age: 39 Year
  Sex: Female
  Weight: 66 kg

DRUGS (1)
  1. NUVARING [Suspect]
     Active Substance: ETHINYL ESTRADIOL\ETONOGESTREL
     Dosage: 0.120 MG/0.015 MG PER 24 HOURS,VAGINAL DELIVERY SYSTEM
     Route: 067
     Dates: start: 20160801, end: 20210317

REACTIONS (2)
  - Thrombophlebitis [Recovered/Resolved]
  - Oedema peripheral [Recovered/Resolved]

NARRATIVE: CASE EVENT DATE: 20190101
